FAERS Safety Report 6179191-0 (Version None)
Quarter: 2009Q2

REPORT INFORMATION
  Report Type: 
  Country: None (occurrence: None)
  Receive Date: 20090505
  Receipt Date: 20090428
  Transmission Date: 20091009
  Serious: Yes (Life-Threatening, Other)
  Sender: FDA-Public Use
  Company Number: US-BAYER-200917598NA

PATIENT
  Sex: Female

DRUGS (1)
  1. YASMIN [Suspect]
     Indication: CONTRACEPTION
     Dosage: TOTAL DAILY DOSE: 1  DF
     Route: 048

REACTIONS (4)
  - ANXIETY [None]
  - INJURY [None]
  - PAIN [None]
  - PULMONARY EMBOLISM [None]
